FAERS Safety Report 25041499 (Version 1)
Quarter: 2025Q1

REPORT INFORMATION
  Report Type: Spontaneous
  Country: US (occurrence: US)
  Receive Date: 20250305
  Receipt Date: 20250305
  Transmission Date: 20250409
  Serious: Yes (Life-Threatening, Hospitalization, Other)
  Sender: AUROBINDO
  Company Number: US-MLMSERVICE-20250214-PI407398-00218-2

PATIENT
  Age: 47 Year
  Sex: Male

DRUGS (2)
  1. METHOTREXATE [Suspect]
     Active Substance: METHOTREXATE
     Indication: Psoriasis
     Route: 065
  2. ADALIMUMAB [Suspect]
     Active Substance: ADALIMUMAB
     Indication: Psoriasis
     Route: 065

REACTIONS (6)
  - Haemophagocytic lymphohistiocytosis [Unknown]
  - Pneumonia klebsiella [Unknown]
  - Histoplasmosis disseminated [Recovering/Resolving]
  - Epstein-Barr virus infection [Unknown]
  - Staphylococcal infection [Unknown]
  - Device related infection [Unknown]
